FAERS Safety Report 7421677-2 (Version None)
Quarter: 2011Q1

REPORT INFORMATION
  Report Type: 
  Country: None (occurrence: None)
  Receive Date: 20110302
  Receipt Date: 20110120
  Transmission Date: 20110831
  Serious: No
  Sender: FDA-Public Use
  Company Number: 021708

PATIENT
  Sex: Male
  Weight: 70.3 kg

DRUGS (6)
  1. HYOSCYAMINE [Concomitant]
  2. CIMZIA [Suspect]
     Indication: CROHN'S DISEASE
     Dosage: 400 MG 1X/4 WEEKS SUBCUTANEOUS
     Route: 058
     Dates: start: 20101012, end: 20101207
  3. FOLIC ACID [Concomitant]
  4. VITAMINS NOS [Concomitant]
  5. SYNTHROID [Concomitant]
  6. ACETAMINOPHEN [Concomitant]

REACTIONS (6)
  - SKIN LESION [None]
  - SEPSIS [None]
  - CROHN'S DISEASE [None]
  - C-REACTIVE PROTEIN INCREASED [None]
  - DIARRHOEA [None]
  - DRUG INEFFECTIVE [None]
